FAERS Safety Report 22166248 (Version 1)
Quarter: 2023Q1

REPORT INFORMATION
  Report Type: Spontaneous
  Country: US (occurrence: None)
  Receive Date: 20230331
  Receipt Date: 20230331
  Transmission Date: 20230417
  Serious: Yes (Hospitalization)
  Sender: FDA-Public Use
  Company Number: None

PATIENT
  Age: 67 Year
  Sex: Male

DRUGS (20)
  1. GAMUNEX-C [Suspect]
     Active Substance: HUMAN IMMUNOGLOBULIN G
     Dates: start: 20180221
  2. GAMUNEX-C [Suspect]
     Active Substance: HUMAN IMMUNOGLOBULIN G
  3. ALBUTEROL [Concomitant]
     Active Substance: ALBUTEROL
  4. ALLOPURINOL [Concomitant]
     Active Substance: ALLOPURINOL
  5. COLCRYS TAB [Concomitant]
  6. CYMBALTA CAP [Concomitant]
  7. FENOFIBRATE TAB [Concomitant]
  8. GLIPIZIDE TAB [Concomitant]
  9. LANSOPRAZOLE CAP [Concomitant]
  10. LASIX TAB [Concomitant]
  11. MAGNESIUM-OX [Concomitant]
  12. METFORMIN TAB [Concomitant]
  13. MONTELUKAST SODIUM [Concomitant]
     Active Substance: MONTELUKAST SODIUM
  14. OXCARBAZEPIN TAB [Concomitant]
  15. POTASSIUM TAB [Concomitant]
  16. PRAMIPEXOLE TAB [Concomitant]
  17. PROAIR HFA AER [Concomitant]
  18. SODIUM CHLORIDE [Concomitant]
     Active Substance: SODIUM CHLORIDE
  19. STRL FLSH [Concomitant]
  20. VICODIN TAB [Concomitant]

REACTIONS (1)
  - Sepsis [None]

NARRATIVE: CASE EVENT DATE: 20230327
